FAERS Safety Report 10091053 (Version 2)
Quarter: 2014Q2

REPORT INFORMATION
  Report Type: Spontaneous
  Country: JP (occurrence: JP)
  Receive Date: 20140421
  Receipt Date: 20140515
  Transmission Date: 20141212
  Serious: Yes (Life-Threatening, Hospitalization, Other)
  Sender: FDA-Public Use
  Company Number: JP-ABBVIE-14P-087-1227764-00

PATIENT
  Sex: Male

DRUGS (8)
  1. LEUPLIN SR [Suspect]
     Indication: PROSTATE CANCER
     Route: 058
     Dates: end: 2013
  2. ROZEREM [Suspect]
     Indication: PRODUCT USED FOR UNKNOWN INDICATION
     Route: 048
  3. DICLOFENAC SODIUM [Suspect]
     Indication: PRODUCT USED FOR UNKNOWN INDICATION
     Route: 048
  4. EURODIN [Suspect]
     Indication: PRODUCT USED FOR UNKNOWN INDICATION
     Route: 048
  5. SERENACE [Concomitant]
     Indication: PRODUCT USED FOR UNKNOWN INDICATION
  6. MYSLEE [Concomitant]
     Indication: PRODUCT USED FOR UNKNOWN INDICATION
  7. AMLODIPINE BESILATE [Concomitant]
     Indication: PRODUCT USED FOR UNKNOWN INDICATION
  8. IMIDAPRIL HYDROCHLORIDE [Concomitant]
     Indication: PRODUCT USED FOR UNKNOWN INDICATION

REACTIONS (17)
  - Ulcer haemorrhage [Unknown]
  - Spinal column stenosis [Unknown]
  - Hypoaesthesia [Unknown]
  - Nail disorder [Unknown]
  - Anaemia [Unknown]
  - Fall [Unknown]
  - Vertigo [Recovered/Resolved]
  - Spinal deformity [Unknown]
  - Fracture [Unknown]
  - Lip disorder [Unknown]
  - Osteoporosis [Unknown]
  - Gait disturbance [Unknown]
  - Cataract [Unknown]
  - Lacrimation increased [Recovering/Resolving]
  - Visual field defect [Unknown]
  - Abdominal pain [Unknown]
  - Insomnia [Unknown]
